FAERS Safety Report 6691452-5 (Version None)
Quarter: 2010Q2

REPORT INFORMATION
  Report Type: 
  Country: None (occurrence: None)
  Receive Date: 20100416
  Receipt Date: 20100408
  Transmission Date: 20101027
  Serious: Yes (Death)
  Sender: FDA-Public Use
  Company Number: 2009SP042655

PATIENT
  Age: 42 Year
  Sex: Male
  Weight: 75 kg

DRUGS (5)
  1. REMERON [Suspect]
     Indication: DEPRESSION
     Dosage: 30 MG; QD; PO
     Route: 048
     Dates: start: 20090911, end: 20091003
  2. MEILAX (ETHYL LOFLAZEPATE) [Suspect]
     Indication: DEPRESSION
     Dosage: 1 MG; ; PO, 2 MG; ONCE; PO
     Route: 048
     Dates: start: 20090911, end: 20091002
  3. MEILAX (ETHYL LOFLAZEPATE) [Suspect]
     Indication: DEPRESSION
     Dosage: 1 MG; ; PO, 2 MG; ONCE; PO
     Route: 048
     Dates: start: 20091003, end: 20091003
  4. ABILIT [Concomitant]
  5. DEPAS [Concomitant]

REACTIONS (2)
  - ASPHYXIA [None]
  - COMPLETED SUICIDE [None]
